FAERS Safety Report 9026045 (Version 1)
Quarter: 2012Q4

REPORT INFORMATION
  Report Type: Spontaneous
  Country: US (occurrence: None)
  Receive Date: 20121214
  Receipt Date: 20121214
  Transmission Date: 20130627
  Serious: Yes (Hospitalization)
  Sender: FDA-Public Use
  Company Number: None

PATIENT
  Age: 51 Year
  Sex: Female
  Weight: 60.78 kg

DRUGS (1)
  1. ERLOTINIB [Suspect]
     Indication: NON-SMALL CELL LUNG CANCER
     Dosage: 100mg days 2-17 of 21d cyc PO
     Dates: start: 20091211

REACTIONS (7)
  - Renal impairment [None]
  - Pyrexia [None]
  - Chills [None]
  - Pain [None]
  - Campylobacter infection [None]
  - Bacteraemia [None]
  - Laboratory test interference [None]
